FAERS Safety Report 7386638-0 (Version None)
Quarter: 2011Q1

REPORT INFORMATION
  Report Type: 
  Country: None (occurrence: None)
  Receive Date: 20110331
  Receipt Date: 20110323
  Transmission Date: 20110831
  Serious: Yes (Other)
  Sender: FDA-Public Use
  Company Number: FR-AMGEN-QUU380273

PATIENT
  Age: 60 Year
  Sex: Male

DRUGS (7)
  1. NEULASTA [Suspect]
     Indication: PRODUCT USED FOR UNKNOWN INDICATION
  2. DOCETAXEL [Suspect]
     Indication: CHEMOTHERAPY
     Dosage: 145 MG, QD
     Route: 042
     Dates: start: 20081124, end: 20090429
  3. NEULASTA [Suspect]
     Indication: CHEMOTHERAPY
     Dosage: 6 MG, UNK
     Route: 058
     Dates: start: 20081124, end: 20090429
  4. ERLOTINIB HYDROCHLORIDE [Suspect]
     Indication: CHEMOTHERAPY
     Dosage: UNK UNK, UNK
     Route: 048
     Dates: start: 20090528
  5. TRANDOLAPRIL [Concomitant]
     Dosage: UNK UNK, UNK
     Route: 048
  6. CISPLATIN [Suspect]
     Indication: CHEMOTHERAPY
     Dosage: 45 MG, QD
     Route: 042
     Dates: start: 20081124, end: 20090429
  7. BEVACIZUMAB [Suspect]
     Indication: CHEMOTHERAPY
     Dosage: 1130 MG, QD
     Route: 042
     Dates: start: 20081124, end: 20090429

REACTIONS (3)
  - DILATATION VENTRICULAR [None]
  - VENTRICULAR HYPOKINESIA [None]
  - EJECTION FRACTION DECREASED [None]
